FAERS Safety Report 13059304 (Version 1)
Quarter: 2016Q4

REPORT INFORMATION
  Report Type: Spontaneous
  Country: US (occurrence: US)
  Receive Date: 20161223
  Receipt Date: 20161223
  Transmission Date: 20170207
  Serious: No
  Sender: FDA-Public Use
  Company Number: US-BAUSCH-BL-2016-020638

PATIENT
  Sex: Male

DRUGS (2)
  1. XENAZINE [Suspect]
     Active Substance: TETRABENAZINE
     Indication: TARDIVE DYSKINESIA
     Route: 048
     Dates: start: 201502
  2. XENAZINE [Suspect]
     Active Substance: TETRABENAZINE
     Route: 048

REACTIONS (4)
  - Off label use [Unknown]
  - Skin sensitisation [Unknown]
  - Skin burning sensation [Unknown]
  - Pain of skin [Unknown]
